FAERS Safety Report 20129174 (Version 1)
Quarter: 2021Q4

REPORT INFORMATION
  Report Type: Other
  Country: None (occurrence: JP)
  Receive Date: 20211130
  Receipt Date: 20211130
  Transmission Date: 20220303
  Serious: Yes (Hospitalization, Other)
  Sender: FDA-Public Use
  Company Number: JP-Nuvo Pharmaceuticals Inc-2122466

PATIENT
  Age: 32 Year
  Sex: Female

DRUGS (1)
  1. SULFASALAZINE [Suspect]
     Active Substance: SULFASALAZINE
     Indication: SAPHO syndrome
     Route: 065

REACTIONS (2)
  - Enteritis [Recovering/Resolving]
  - Product use in unapproved indication [Unknown]
